FAERS Safety Report 23295179 (Version 1)
Quarter: 2023Q4

REPORT INFORMATION
  Report Type: Spontaneous
  Country: ES (occurrence: ES)
  Receive Date: 20231213
  Receipt Date: 20231213
  Transmission Date: 20240109
  Serious: Yes (Other)
  Sender: FDA-Public Use
  Company Number: ES-PFIZER INC-PV202300192857

PATIENT
  Age: 62 Year
  Sex: Male

DRUGS (5)
  1. CIPROFLOXACIN [Suspect]
     Active Substance: CIPROFLOXACIN
     Indication: Peritonitis bacterial
     Dosage: UNK
     Route: 065
  2. VANCOMYCIN HYDROCHLORIDE [Suspect]
     Active Substance: VANCOMYCIN HYDROCHLORIDE
     Indication: Peritonitis bacterial
     Dosage: UNK
     Route: 033
  3. GENTAMICIN [Suspect]
     Active Substance: GENTAMICIN
     Indication: Peritonitis bacterial
     Dosage: UNK
     Route: 033
  4. GENTAMICIN [Suspect]
     Active Substance: GENTAMICIN
     Dosage: UNK
     Route: 042
  5. SULFAMETHOXAZOLE\TRIMETHOPRIM [Suspect]
     Active Substance: SULFAMETHOXAZOLE\TRIMETHOPRIM
     Indication: Peritonitis bacterial
     Dosage: UNK
     Route: 065

REACTIONS (2)
  - Drug ineffective [Unknown]
  - Off label use [Unknown]
